FAERS Safety Report 20080949 (Version 3)
Quarter: 2022Q3

REPORT INFORMATION
  Report Type: Spontaneous
  Country: US (occurrence: US)
  Receive Date: 20211117
  Receipt Date: 20220728
  Transmission Date: 20221026
  Serious: No
  Sender: FDA-Public Use
  Company Number: US-TAKEDA-2021TUS070443

PATIENT
  Age: 39 Year
  Sex: Female
  Weight: 62 kg

DRUGS (2)
  1. ENTYVIO [Suspect]
     Active Substance: VEDOLIZUMAB
     Indication: Colitis ulcerative
     Dosage: 300 MILLIGRAM
     Route: 042
     Dates: start: 202108
  2. PREDNISONE [Concomitant]
     Active Substance: PREDNISONE
     Dosage: UNK

REACTIONS (7)
  - Blood albumin decreased [Unknown]
  - Peripheral swelling [Unknown]
  - Alopecia [Unknown]
  - Spinal pain [Unknown]
  - Gastritis [Unknown]
  - Sinusitis [Unknown]
  - Back pain [Unknown]

NARRATIVE: CASE EVENT DATE: 20210901
